FAERS Safety Report 8790248 (Version 2)
Quarter: 2012Q4

REPORT INFORMATION
  Report Type: 
  Country: US (occurrence: US)
  Receive Date: 20120917
  Receipt Date: 20121112
  Transmission Date: 20130627
  Serious: Yes (Death)
  Sender: FDA-Public Use
  Company Number: US-JNJFOC-20120906282

PATIENT
  Age: 9 None
  Sex: Female

DRUGS (1)
  1. BENADRYL ALLERGY KAPGELS [Suspect]
     Indication: PRURITUS
     Route: 048

REACTIONS (2)
  - Death [Fatal]
  - Off label use [Unknown]
